FAERS Safety Report 25707089 (Version 1)
Quarter: 2025Q3

REPORT INFORMATION
  Report Type: Spontaneous
  Country: GB (occurrence: GB)
  Receive Date: 20250820
  Receipt Date: 20250820
  Transmission Date: 20251020
  Serious: Yes (Life-Threatening, Other)
  Sender: ELI LILLY AND COMPANY
  Company Number: GB-MHRA-TPP36926048C10946531YC1755260733801

PATIENT
  Age: 56 Year
  Sex: Female
  Weight: 148 kg

DRUGS (4)
  1. MOUNJARO [Suspect]
     Active Substance: TIRZEPATIDE
     Indication: Product used for unknown indication
     Dosage: 2.5 MG, WEEKLY (1/W)
     Route: 065
     Dates: start: 20250708
  2. OMEPRAZOLE [Concomitant]
     Active Substance: OMEPRAZOLE
     Indication: Gastrointestinal disorder
     Dosage: UNK, EACH MORNING
     Dates: start: 20250814
  3. LANSOPRAZOLE [Concomitant]
     Active Substance: LANSOPRAZOLE
     Indication: Ill-defined disorder
     Dosage: 1 DOSAGE FORM, DAILY
     Dates: start: 20250815
  4. LOSARTAN [Concomitant]
     Active Substance: LOSARTAN
     Indication: Hypertension
     Dosage: 1 DOSAGE FORM, DAILY
     Dates: start: 20240703

REACTIONS (1)
  - Pancreatitis acute [Recovering/Resolving]

NARRATIVE: CASE EVENT DATE: 20250802
